FAERS Safety Report 20620156 (Version 1)
Quarter: 2022Q1

REPORT INFORMATION
  Report Type: Report from Study
  Country: US (occurrence: US)
  Receive Date: 20220322
  Receipt Date: 20220322
  Transmission Date: 20220423
  Serious: Yes (Hospitalization)
  Sender: FDA-Public Use
  Company Number: US-SERVIER-S22000860

PATIENT

DRUGS (9)
  1. PEGASPARGASE [Suspect]
     Active Substance: PEGASPARGASE
     Indication: B precursor type acute leukaemia
     Dosage: 2000 IU/M2 (3750 IU), D15, D43
     Route: 042
     Dates: start: 20211123, end: 20211123
  2. PEGASPARGASE [Suspect]
     Active Substance: PEGASPARGASE
     Dosage: 2000 IU/M2 (3750 IU), D15, D43
     Route: 042
     Dates: start: 20211229, end: 20211229
  3. CYCLOPHOSPHAMIDE [Suspect]
     Active Substance: CYCLOPHOSPHAMIDE
     Indication: B precursor type acute leukaemia
     Dosage: 1000 MG/M2, ON DAYS 1, 29
     Route: 042
     Dates: start: 20211110, end: 20211215
  4. CYTARABINE [Suspect]
     Active Substance: CYTARABINE
     Indication: B precursor type acute leukaemia
     Dosage: 75 MG/M2, DAYS 1-4, 8-11, 29-32, 36-39
     Route: 042
     Dates: start: 20211110, end: 20211227
  5. MERCAPTOPURINE [Suspect]
     Active Substance: MERCAPTOPURINE
     Indication: B precursor type acute leukaemia
     Dosage: 60 MG/M2, DAYS 1-14 AND 29-42
     Route: 048
     Dates: start: 20211215, end: 20220107
  6. METHOTREXATE SODIUM [Suspect]
     Active Substance: METHOTREXATE SODIUM
     Indication: B precursor type acute leukaemia
     Dosage: 15 MG, DAYS 1, 8, 15, 22
     Route: 037
     Dates: start: 20211110, end: 20211222
  7. RITUXIMAB [Suspect]
     Active Substance: RITUXIMAB
     Indication: B precursor type acute leukaemia
     Dosage: 375 MG/M2, DAYS 1, 8 AND 29, 36
     Route: 042
     Dates: start: 20211117, end: 20211222
  8. VINCRISTINE SULFATE [Suspect]
     Active Substance: VINCRISTINE SULFATE
     Indication: B precursor type acute leukaemia
     Dosage: 1.5 MG/M2, DAYS 1, 8, 15, 22
     Route: 042
     Dates: start: 20211123, end: 20220105
  9. TN UNSPECIFIED [Concomitant]
     Indication: B precursor type acute leukaemia
     Dosage: 0.5 MG/M2, DAYS 1, 8 AND 15 OF A 28-DAY CYCLE
     Route: 042
     Dates: end: 20211021

REACTIONS (1)
  - Bacterial sepsis [Recovered/Resolved]

NARRATIVE: CASE EVENT DATE: 20220107
